FAERS Safety Report 5955429-7 (Version None)
Quarter: 2008Q4

REPORT INFORMATION
  Report Type: 
  Country: None (occurrence: None)
  Receive Date: 20081031
  Receipt Date: 20080720
  Transmission Date: 20090506
  Serious: No
  Sender: FDA-Public Use
  Company Number: 2008PV036226

PATIENT
  Age: 60 Year
  Sex: Female

DRUGS (5)
  1. SYMLINPEN 60 ( PRAMLINTIDE ACETATE) PEN-INJECTOR (1.0 MG/ML) [Suspect]
     Indication: TYPE 1 DIABETES MELLITUS
     Dosage: 15 MCG; TID; SC
     Route: 058
     Dates: start: 20080720
  2. HUMALOG [Suspect]
     Indication: TYPE 1 DIABETES MELLITUS
     Dosage: 12 MCG; TID; SC
     Route: 058
     Dates: start: 20080720
  3. LANTUS [Suspect]
     Indication: TYPE 1 DIABETES MELLITUS
     Dosage: 108 MCG; QPM; SC
     Route: 058
     Dates: start: 20080719
  4. HUMALOG [Concomitant]
  5. LANTUS [Concomitant]

REACTIONS (1)
  - BLOOD PRESSURE INCREASED [None]
